FAERS Safety Report 8145778-9 (Version None)
Quarter: 2012Q1

REPORT INFORMATION
  Report Type: 
  Country: None (occurrence: None)
  Receive Date: 20120217
  Receipt Date: 20110301
  Transmission Date: 20120608
  Serious: No
  Sender: FDA-Public Use
  Company Number: US-ABBOTT-11P-163-0708486-00

PATIENT
  Sex: Male
  Weight: 102.15 kg

DRUGS (6)
  1. SIMCOR [Suspect]
     Dosage: 500/20MG 2 TABS Q HS, TOTAL 1000/40MG
  2. QUINAPRIL HCL AND HYDROCHLOROTHIAZIDE [Concomitant]
     Indication: PRODUCT USED FOR UNKNOWN INDICATION
  3. SIMCOR [Suspect]
     Indication: PRODUCT USED FOR UNKNOWN INDICATION
     Dosage: 500/20MG Q HS
     Dates: start: 20101201
  4. MOBIC [Concomitant]
     Indication: PRODUCT USED FOR UNKNOWN INDICATION
  5. AMBIEN [Concomitant]
     Indication: PRODUCT USED FOR UNKNOWN INDICATION
     Dosage: Q HS
  6. ASPIRIN [Concomitant]
     Indication: PRODUCT USED FOR UNKNOWN INDICATION
     Dosage: Q HS

REACTIONS (4)
  - EYE PRURITUS [None]
  - SKIN BURNING SENSATION [None]
  - FLUSHING [None]
  - PRURITUS [None]
